FAERS Safety Report 6079326-4 (Version None)
Quarter: 2009Q1

REPORT INFORMATION
  Report Type: 
  Country: None (occurrence: None)
  Receive Date: 20090216
  Receipt Date: 20090210
  Transmission Date: 20090719
  Serious: Yes (Death)
  Sender: FDA-Public Use
  Company Number: GB-ASTRAZENECA-2009GB00457

PATIENT
  Age: 15 Year
  Sex: Female

DRUGS (2)
  1. DIPRIVAN [Suspect]
     Indication: SEDATION
     Route: 042
  2. MIDAZOLAM [Concomitant]

REACTIONS (1)
  - DEATH [None]
